FAERS Safety Report 26040468 (Version 2)
Quarter: 2025Q4

REPORT INFORMATION
  Report Type: Spontaneous
  Country: EU (occurrence: EU)
  Receive Date: 20251113
  Receipt Date: 20251121
  Transmission Date: 20260118
  Serious: Yes (Hospitalization)
  Sender: BRACCO
  Company Number: EU-BRACCO-2025DK07707

PATIENT
  Age: 54 Year
  Sex: Female

DRUGS (1)
  1. VUEWAY [Suspect]
     Active Substance: GADOPICLENOL
     Indication: Magnetic resonance imaging
     Dosage: 7.5 ML, SINGLE
     Route: 042
     Dates: start: 20251030, end: 20251030

REACTIONS (2)
  - Urticaria [Recovered/Resolved]
  - Erythema [Recovered/Resolved]

NARRATIVE: CASE EVENT DATE: 20251030
